FAERS Safety Report 20245704 (Version 1)
Quarter: 2021Q4

REPORT INFORMATION
  Report Type: Spontaneous
  Country: CA (occurrence: CA)
  Receive Date: 20211229
  Receipt Date: 20211229
  Transmission Date: 20220303
  Serious: Yes (Life-Threatening, Hospitalization)
  Sender: FDA-Public Use
  Company Number: None

PATIENT
  Sex: Male
  Weight: 2 kg

DRUGS (5)
  1. MIDAZOLAM [Suspect]
     Active Substance: MIDAZOLAM
     Indication: Foetal exposure during pregnancy
     Dosage: MOTHER DOSE :1.5 MG, QD
     Route: 064
  2. PROPOFOL [Suspect]
     Active Substance: PROPOFOL
     Indication: Foetal exposure during pregnancy
     Dosage: MOTHER DOSE: 200 MG, QD
     Route: 064
  3. SUCCINYLCHOLINE CHLORIDE [Suspect]
     Active Substance: SUCCINYLCHOLINE CHLORIDE
     Indication: Foetal exposure during pregnancy
     Dosage: MOTHER DOSE: 140 MG, QD
     Route: 064
  4. TRANEXAMIC ACID [Concomitant]
     Active Substance: TRANEXAMIC ACID
     Indication: Foetal exposure during pregnancy
     Dosage: UNK
     Route: 064
  5. CEFAZOLIN [Concomitant]
     Active Substance: CEFAZOLIN
     Indication: Foetal exposure during pregnancy
     Dosage: UNK
     Route: 064

REACTIONS (3)
  - Hyporesponsive to stimuli [Unknown]
  - Respiratory depression [Unknown]
  - Hypotonia [Unknown]
